FAERS Safety Report 11444375 (Version 1)
Quarter: 2015Q3

REPORT INFORMATION
  Report Type: Spontaneous
  Country: TW (occurrence: TW)
  Receive Date: 20150902
  Receipt Date: 20150902
  Transmission Date: 20151125
  Serious: Yes (Hospitalization)
  Sender: FDA-Public Use
  Company Number: TW-AMGEN-TWNSP2015089051

PATIENT
  Age: 49 Year
  Sex: Male

DRUGS (1)
  1. ENBREL [Suspect]
     Active Substance: ETANERCEPT
     Indication: ANKYLOSING SPONDYLITIS
     Dosage: 25 MG, 2X/WEEK
     Route: 058
     Dates: start: 201306

REACTIONS (7)
  - Anaemia [Unknown]
  - Functional gastrointestinal disorder [Unknown]
  - Benign prostatic hyperplasia [Unknown]
  - Urticaria [Unknown]
  - Coronary artery disease [Unknown]
  - Hypertension [Unknown]
  - Insomnia [Unknown]
